FAERS Safety Report 9003884 (Version 1)
Quarter: 2013Q1

REPORT INFORMATION
  Report Type: Spontaneous
  Country: US (occurrence: US)
  Receive Date: 20130108
  Receipt Date: 20130108
  Transmission Date: 20140127
  Serious: Yes (Death)
  Sender: FDA-Public Use
  Company Number: US-ASTRAZENECA-2013SE01129

PATIENT
  Age: 56 Year
  Sex: Male

DRUGS (11)
  1. LISINOPRIL [Suspect]
     Route: 048
  2. ZOLPIDEM [Suspect]
     Route: 048
  3. CYCLIC ANTIDEPRESSANT [Suspect]
     Route: 048
  4. CITALOPRAM [Suspect]
     Route: 048
  5. CLONAZEPAM [Suspect]
     Route: 048
  6. GABAPENTIN [Suspect]
     Route: 048
  7. CYCLOBENZAPRINE [Suspect]
     Route: 048
  8. ACETAMINOPHEN/BUTALBITAL/CAFFEIN [Suspect]
     Route: 048
  9. SUMATRIPTAN [Suspect]
     Route: 048
  10. DRUG, UNKNOWN [Suspect]
     Route: 048
  11. NAPROXEN [Suspect]
     Route: 048

REACTIONS (2)
  - Completed suicide [Fatal]
  - Toxicity to various agents [Fatal]
